FAERS Safety Report 4638500-1 (Version None)
Quarter: 2005Q2

REPORT INFORMATION
  Report Type: 
  Country: None (occurrence: None)
  Receive Date: 20050418
  Receipt Date: 20050401
  Transmission Date: 20051028
  Serious: Yes (Death, Hospitalization, Other)
  Sender: FDA-Public Use
  Company Number: 2005-0008088

PATIENT
  Age: 35 Year
  Sex: Female
  Weight: 68 kg

DRUGS (6)
  1. VIREAD [Suspect]
     Indication: HIV INFECTION
     Dosage: 300 MG, 1 IN 1 D, ORAL
     Route: 048
  2. DEPAKENE [Concomitant]
     Indication: EPILEPSY
     Dosage: 300 MG, 1 IN 1 D, ORAL
     Route: 048
     Dates: start: 20030301
  3. EPIVIR [Concomitant]
  4. NON NUCLEOSIDIC AGENT (ANTIVIRALS FOR SUSTEMIC USE) [Concomitant]
  5. PROTEASE INHIBITOR (PROTEASE INHIBITORS) [Concomitant]
  6. SULFADIAZINE [Concomitant]

REACTIONS (2)
  - BLOOD CREATININE INCREASED [None]
  - FANCONI SYNDROME [None]
